FAERS Safety Report 6141767-4 (Version None)
Quarter: 2009Q2

REPORT INFORMATION
  Report Type: 
  Country: None (occurrence: None)
  Receive Date: 20090402
  Receipt Date: 20080812
  Transmission Date: 20091009
  Serious: No
  Sender: FDA-Public Use
  Company Number: US-ABBOTT-08P-163-0470075-00

PATIENT
  Sex: Female

DRUGS (5)
  1. LUPRON DEPOT [Suspect]
     Indication: DRUG USE FOR UNKNOWN INDICATION
     Route: 030
     Dates: start: 20080729
  2. METOPROLOL SUCCINATE [Concomitant]
     Indication: HEART RATE IRREGULAR
     Route: 048
  3. NASAONEX [Concomitant]
     Indication: SEASONAL ALLERGY
     Route: 045
  4. LOQUOID LIPO CREAM [Concomitant]
     Indication: ECZEMA
     Route: 061
  5. IBUPROFEN [Concomitant]
     Indication: DRUG USE FOR UNKNOWN INDICATION
     Route: 048
     Dates: start: 20080802

REACTIONS (2)
  - FEELING JITTERY [None]
  - MENORRHAGIA [None]
